FAERS Safety Report 9534790 (Version 1)
Quarter: 2013Q3

REPORT INFORMATION
  Report Type: Spontaneous
  Country: DE (occurrence: DE)
  Receive Date: 20130918
  Receipt Date: 20130918
  Transmission Date: 20140515
  Serious: Yes (Other)
  Sender: FDA-Public Use
  Company Number: DE-PFIZER INC-2013263357

PATIENT
  Age: 42 Year
  Sex: Male

DRUGS (3)
  1. SILDENAFIL CITRATE [Suspect]
     Dosage: 25 MG, UNK
     Dates: start: 201308, end: 2013
  2. SILDENAFIL CITRATE [Suspect]
     Dosage: 50 MG, SINGLE
     Dates: start: 2013, end: 2013
  3. SILDENAFIL CITRATE [Suspect]
     Dosage: 100 MG, SINGLE
     Dates: start: 2013, end: 2013

REACTIONS (1)
  - Alpha 1 foetoprotein increased [Unknown]
